FAERS Safety Report 25156269 (Version 1)
Quarter: 2025Q2

REPORT INFORMATION
  Report Type: Spontaneous
  Country: JP (occurrence: JP)
  Receive Date: 20250403
  Receipt Date: 20250403
  Transmission Date: 20250716
  Serious: Yes (Other)
  Sender: PFIZER
  Company Number: JP-PFIZER INC-PV202500035823

PATIENT
  Age: 49 Year
  Sex: Female

DRUGS (4)
  1. THYMOCYTE IMMUNE GLOBULIN NOS [Suspect]
     Active Substance: THYMOCYTE IMMUNE GLOBULIN NOS
  2. CYCLOSPORINE [Suspect]
     Active Substance: CYCLOSPORINE
  3. PREDNISOLONE [Suspect]
     Active Substance: PREDNISOLONE
  4. ELTROMBOPAG [Concomitant]
     Active Substance: ELTROMBOPAG

REACTIONS (1)
  - Posterior reversible encephalopathy syndrome [Recovering/Resolving]
